FAERS Safety Report 20764696 (Version 8)
Quarter: 2024Q4

REPORT INFORMATION
  Report Type: Spontaneous
  Country: US (occurrence: US)
  Receive Date: 20220428
  Receipt Date: 20241211
  Transmission Date: 20250114
  Serious: No
  Sender: PFIZER
  Company Number: US-PFIZER INC-202101418298

PATIENT
  Age: 74 Year
  Sex: Female
  Weight: 64.853 kg

DRUGS (3)
  1. TIKOSYN [Suspect]
     Active Substance: DOFETILIDE
     Indication: Atrial fibrillation
     Dosage: 2 AT NIGHT
  2. TIKOSYN [Suspect]
     Active Substance: DOFETILIDE
     Indication: Cardiac flutter
     Dosage: 250 MG, 2X/DAY (ONE IN THE MORNING AND ONE AT NIGHT EVERY 12 HOURS)
  3. TIKOSYN [Suspect]
     Active Substance: DOFETILIDE
     Dosage: 250 UG, 2X/DAY (TAKE 1 CAPSULE BY MOUTH TWICE DAILY)
     Route: 048

REACTIONS (3)
  - Coronavirus infection [Unknown]
  - Off label use [Unknown]
  - Wrong strength [Unknown]
